FAERS Safety Report 17263515 (Version 2)
Quarter: 2020Q1

REPORT INFORMATION
  Report Type: Spontaneous
  Country: US (occurrence: US)
  Receive Date: 20200113
  Receipt Date: 20200220
  Transmission Date: 20200409
  Serious: Yes (Disabling, Other)
  Sender: FDA-Public Use
  Company Number: US-009507513-2001USA002105

PATIENT
  Age: 83 Year
  Sex: Female
  Weight: 57.6 kg

DRUGS (1)
  1. KEYTRUDA [Suspect]
     Active Substance: PEMBROLIZUMAB
     Indication: ENDOMETRIAL CANCER
     Dosage: 200 MILLIGRAM, EVERY 3 WEEKS
     Route: 042
     Dates: start: 20190620

REACTIONS (2)
  - Thyroid cancer [Recovered/Resolved with Sequelae]
  - Thyroidectomy [Unknown]

NARRATIVE: CASE EVENT DATE: 20191230
